FAERS Safety Report 8138050-4 (Version None)
Quarter: 2012Q1

REPORT INFORMATION
  Report Type: 
  Country: None (occurrence: None)
  Receive Date: 20120215
  Receipt Date: 20120210
  Transmission Date: 20120608
  Serious: Yes (Other)
  Sender: FDA-Public Use
  Company Number: US-BAYER-2012-014277

PATIENT
  Age: 27 Year
  Sex: Female

DRUGS (2)
  1. YAZ [Suspect]
     Dosage: UNK
     Dates: start: 20100301, end: 20110214
  2. YASMIN [Suspect]
     Dosage: UNK
     Dates: start: 20100301, end: 20110214

REACTIONS (1)
  - THROMBOSIS [None]
